FAERS Safety Report 10155542 (Version 1)
Quarter: 2014Q2

REPORT INFORMATION
  Report Type: Spontaneous
  Country: US (occurrence: US)
  Receive Date: 20140506
  Receipt Date: 20140506
  Transmission Date: 20141212
  Serious: Yes (Death, Hospitalization)
  Sender: FDA-Public Use
  Company Number: US-BRISTOL-MYERS SQUIBB COMPANY-20691234

PATIENT
  Age: 59 Year
  Sex: Female

DRUGS (3)
  1. BARACLUDE [Suspect]
  2. SYNTHROID [Concomitant]
  3. LACTULOSE [Concomitant]

REACTIONS (2)
  - Death [Fatal]
  - Hepatic neoplasm [Unknown]
